FAERS Safety Report 7683740-0 (Version None)
Quarter: 2011Q3

REPORT INFORMATION
  Report Type: 
  Country: None (occurrence: None)
  Receive Date: 20110810
  Receipt Date: 20110726
  Transmission Date: 20111222
  Serious: Yes (Hospitalization, Disabling, Other)
  Sender: FDA-Public Use
  Company Number: GER/UKI/11/0019202

PATIENT
  Age: 95 Year
  Sex: Male

DRUGS (1)
  1. CIPROFLOXACIN [Suspect]
     Indication: URINARY TRACT INFECTION
     Dosage: 500 MG, 2 IN 1 D, ORAL
     Route: 048

REACTIONS (3)
  - JOINT SWELLING [None]
  - TENDON RUPTURE [None]
  - FALL [None]
